FAERS Safety Report 17597921 (Version 1)
Quarter: 2020Q1

REPORT INFORMATION
  Report Type: Spontaneous
  Country: US (occurrence: US)
  Receive Date: 20200326
  Receipt Date: 20200326
  Transmission Date: 20200409
  Serious: No
  Sender: FDA-Public Use
  Company Number: None

PATIENT
  Age: 70 Year
  Sex: Female
  Weight: 61.23 kg

DRUGS (7)
  1. IRON [Concomitant]
     Active Substance: IRON
  2. BIOSIL [Concomitant]
  3. B-12 INJECTIONS [Concomitant]
  4. SYNTHROID [Concomitant]
     Active Substance: LEVOTHYROXINE SODIUM
  5. RADIANCE WOMENS MULTIVITAMINS [Concomitant]
  6. NYSTATIN CREAM USP [Suspect]
     Active Substance: NYSTATIN
     Indication: FUNGAL SKIN INFECTION
     Dosage: ?          QUANTITY:APPLY TO AFFECTED ;OTHER ROUTE:ON THE SKIN?
     Route: 061
     Dates: start: 20200202, end: 20200205
  7. GINGO KEA [Concomitant]

REACTIONS (7)
  - Skin erosion [None]
  - Condition aggravated [None]
  - Pain of skin [None]
  - Erythema [None]
  - Paradoxical drug reaction [None]
  - Skin weeping [None]
  - Fungal skin infection [None]

NARRATIVE: CASE EVENT DATE: 20200205
